FAERS Safety Report 7340650 (Version 2)
Quarter: 2019Q2

REPORT INFORMATION
  Report Type: Spontaneous
  Country: GB (occurrence: GB)
  Receive Date: 20090709
  Receipt Date: 20190606
  Transmission Date: 20190711
  Serious: Yes (Life-Threatening, Hospitalization, Disabling, Other)
  Sender: FDA-Public Use
  Company Number: GB-MYLANLABS-2009S1011416

PATIENT
  Age: 57 Year
  Sex: Female

DRUGS (13)
  1. TRUVADA [Interacting]
     Active Substance: EMTRICITABINE\TENOFOVIR DISOPROXIL FUMARATE
     Indication: HIV INFECTION
     Dosage: 1 DOSAGE FORM, QD
     Route: 048
     Dates: start: 2002
  2. ACICLOVIR [Concomitant]
     Active Substance: ACYCLOVIR
     Dosage: 500 MILLIGRAM, QD
     Route: 042
  3. LOPERAMIDE [Concomitant]
     Active Substance: LOPERAMIDE
     Indication: CROHN^S DISEASE
     Dosage: 2 MG,QID
     Route: 048
  4. LOPERAMIDE [Concomitant]
     Active Substance: LOPERAMIDE
     Dosage: 2 MILLIGRAM, QD
     Route: 048
  5. EFAVIRENZ. [Concomitant]
     Active Substance: EFAVIRENZ
     Indication: HIV INFECTION
     Dosage: 600 MG,QD
     Route: 048
  6. AZATHIOPRINE. [Suspect]
     Active Substance: AZATHIOPRINE
     Indication: CROHN^S DISEASE
     Dosage: 50 MILLIGRAM, QD
     Route: 048
     Dates: start: 2005
  7. BUSCOPAN [Concomitant]
     Active Substance: BUTYLSCOPOLAMINE BROMIDE
     Indication: CROHN^S DISEASE
     Dosage: 20 MG,TID
     Route: 048
  8. MORPHINE SULPHATE [Concomitant]
     Active Substance: MORPHINE SULFATE
     Dosage: 5 MILLIGRAM, QD
     Route: 048
  9. OMEPRAZOLE. [Concomitant]
     Active Substance: OMEPRAZOLE
     Indication: CROHN^S DISEASE
     Dosage: 20 MILLIGRAM, QD
     Route: 048
  10. PREDNISOLONE. [Concomitant]
     Active Substance: PREDNISOLONE
     Indication: OPTIC NEURITIS
     Dosage: 100 MG,QD
     Route: 048
  11. ACICLOVIR [Concomitant]
     Active Substance: ACYCLOVIR
     Indication: PRODUCT USED FOR UNKNOWN INDICATION
     Dosage: 500 MG,TID
     Route: 042
  12. BUSCOPAN [Concomitant]
     Active Substance: BUTYLSCOPOLAMINE BROMIDE
     Dosage: 20 MILLIGRAM, QD
     Route: 048
  13. MORPHINE SULPHATE [Concomitant]
     Active Substance: MORPHINE SULFATE
     Indication: CROHN^S DISEASE
     Dosage: 5 MG,QID
     Route: 048

REACTIONS (5)
  - Encephalitis [Unknown]
  - Seizure [Unknown]
  - Brain neoplasm [Unknown]
  - Drug interaction [Unknown]
  - Loss of consciousness [Unknown]
